FAERS Safety Report 6587620-3 (Version None)
Quarter: 2010Q1

REPORT INFORMATION
  Report Type: 
  Country: None (occurrence: None)
  Receive Date: 20100217
  Receipt Date: 20100217
  Transmission Date: 20100710
  Serious: Yes (Other)
  Sender: FDA-Public Use
  Company Number: None

PATIENT
  Sex: Female
  Weight: 83.9154 kg

DRUGS (1)
  1. CATAPRES-TTS-3 [Suspect]
     Indication: HYPERTENSION
     Dosage: 1 PATCH EVERY WEEK TRANSDERMAL
     Route: 062
     Dates: start: 20090904, end: 20100216

REACTIONS (8)
  - APPLICATION SITE DISCOMFORT [None]
  - APPLICATION SITE PRURITUS [None]
  - APPLICATION SITE RASH [None]
  - APPLICATION SITE SWELLING [None]
  - HYPERSENSITIVITY [None]
  - NASOPHARYNGITIS [None]
  - SNEEZING [None]
  - WRONG TECHNIQUE IN DRUG USAGE PROCESS [None]
